FAERS Safety Report 17487749 (Version 4)
Quarter: 2022Q3

REPORT INFORMATION
  Report Type: Spontaneous
  Country: US (occurrence: US)
  Receive Date: 20200303
  Receipt Date: 20220707
  Transmission Date: 20221027
  Serious: No
  Sender: FDA-Public Use
  Company Number: US-VERTEX PHARMACEUTICALS-2020-003928

PATIENT
  Sex: Female
  Weight: 59 kg

DRUGS (7)
  1. TRIKAFTA [Suspect]
     Active Substance: ELEXACAFTOR\IVACAFTOR\TEZACAFTOR
     Indication: Cystic fibrosis
     Dosage: (2 ORANGE TABS) AM AND (1 BLUE TAB) PM
     Route: 048
  2. TRIKAFTA [Suspect]
     Active Substance: ELEXACAFTOR\IVACAFTOR\TEZACAFTOR
     Dosage: 2 ORANGE TABS EVERY OTHER DAY
     Route: 048
     Dates: start: 20210520, end: 202202
  3. TRIKAFTA [Suspect]
     Active Substance: ELEXACAFTOR\IVACAFTOR\TEZACAFTOR
     Dosage: 3 PILLS A WEEK
     Route: 048
     Dates: start: 202202, end: 2022
  4. TRIKAFTA [Suspect]
     Active Substance: ELEXACAFTOR\IVACAFTOR\TEZACAFTOR
     Dosage: REDUCED DOSE, 2 ORANGE PILLS A WEEK
     Route: 048
     Dates: start: 2022
  5. INSULIN NOS [Suspect]
     Active Substance: INSULIN NOS
     Indication: Blood glucose decreased
     Route: 065
  6. PULMOZYME [Concomitant]
     Active Substance: DORNASE ALFA
     Dosage: UNK
  7. SODIUM CHLORIDE [Concomitant]
     Active Substance: SODIUM CHLORIDE
     Dosage: UNK

REACTIONS (13)
  - Joint swelling [Unknown]
  - Cough [Unknown]
  - Constipation [Unknown]
  - Weight increased [Unknown]
  - Dry skin [Unknown]
  - Dysmenorrhoea [Unknown]
  - Diarrhoea [Unknown]
  - Abdominal discomfort [Unknown]
  - Wound [Not Recovered/Not Resolved]
  - Hair growth abnormal [Not Recovered/Not Resolved]
  - Heavy menstrual bleeding [Unknown]
  - Abdominal distension [Unknown]
  - Blood glucose decreased [Unknown]
